FAERS Safety Report 12343889 (Version 3)
Quarter: 2016Q3

REPORT INFORMATION
  Report Type: Spontaneous
  Country: US (occurrence: US)
  Receive Date: 20160507
  Receipt Date: 20160801
  Transmission Date: 20161109
  Serious: Yes (Hospitalization, Other)
  Sender: FDA-Public Use
  Company Number: PHEH2016US009924

PATIENT
  Age: 82 Year
  Sex: Female

DRUGS (14)
  1. CALCIUM CITRATE [Suspect]
     Active Substance: CALCIUM CITRATE
     Dosage: 250 MG, QD
     Route: 065
     Dates: end: 20150826
  2. TYLENOL [Concomitant]
     Active Substance: ACETAMINOPHEN
     Indication: PRODUCT USED FOR UNKNOWN INDICATION
     Dosage: UNK UNK, PRN
     Route: 065
  3. KLOR-CON [Concomitant]
     Active Substance: POTASSIUM CHLORIDE
     Indication: PRODUCT USED FOR UNKNOWN INDICATION
     Route: 065
  4. LETROZOL [Suspect]
     Active Substance: LETROZOLE
     Indication: BREAST CANCER
     Dosage: 2.5 MG, QD (DAILY)
     Route: 065
     Dates: start: 201509
  5. ALENDRONATE [Suspect]
     Active Substance: ALENDRONATE SODIUM
     Indication: BONE DENSITY DECREASED
     Dosage: 70 MG, QW EMPTY STOMACH
     Route: 065
  6. CENTRUM SILVER ADULTS 50+ [Concomitant]
     Active Substance: MINERALS\VITAMINS
     Indication: BONE DENSITY DECREASED
     Dosage: UNK UNK, QD
     Route: 065
     Dates: start: 2005
  7. ASPIRIN                            /00346701/ [Concomitant]
     Active Substance: ASCORBIC ACID\ASPIRIN
     Indication: ABDOMINAL PAIN UPPER
     Dosage: 87 MG, UNK
     Route: 065
  8. CALCIUM CITRATE [Suspect]
     Active Substance: CALCIUM CITRATE
     Indication: BONE DISORDER
     Dosage: 300 MG, UNK
     Route: 065
     Dates: start: 201509
  9. CALCIUM CARBONATE. [Concomitant]
     Active Substance: CALCIUM CARBONATE
     Indication: PRODUCT USED FOR UNKNOWN INDICATION
     Route: 065
  10. ZOMAX [Concomitant]
     Active Substance: ZOMEPIRAC SODIUM
     Indication: PRODUCT USED FOR UNKNOWN INDICATION
     Route: 065
  11. AMLODIPINE BESYLATE. [Suspect]
     Active Substance: AMLODIPINE BESYLATE
     Indication: PRODUCT USED FOR UNKNOWN INDICATION
     Route: 065
  12. FOSAMAX [Suspect]
     Active Substance: ALENDRONATE SODIUM
     Indication: BONE DENSITY ABNORMAL
     Dosage: UNK
     Route: 065
     Dates: end: 20160106
  13. VITAMIN D [Concomitant]
     Active Substance: CHOLECALCIFEROL
     Indication: PRODUCT USED FOR UNKNOWN INDICATION
     Dosage: UNK IU, UNK
     Route: 065
  14. CALCIUM [Concomitant]
     Active Substance: CALCIUM
     Indication: PRODUCT USED FOR UNKNOWN INDICATION
     Route: 065

REACTIONS (30)
  - Dysstasia [Unknown]
  - Sciatica [Unknown]
  - Swelling [Unknown]
  - Pain in extremity [Unknown]
  - Back pain [Unknown]
  - Vision blurred [Not Recovered/Not Resolved]
  - Arthralgia [Unknown]
  - Osteoporosis [Unknown]
  - Somnolence [Unknown]
  - Gait disturbance [Unknown]
  - Hypoacusis [Not Recovered/Not Resolved]
  - Blister [Unknown]
  - Visual impairment [Unknown]
  - Spinal fracture [Unknown]
  - Dysphonia [Not Recovered/Not Resolved]
  - Throat lesion [Unknown]
  - Balance disorder [Not Recovered/Not Resolved]
  - Immune system disorder [Unknown]
  - Pain [Unknown]
  - Asthenia [Unknown]
  - Fall [Unknown]
  - Weight decreased [Unknown]
  - Eye swelling [Unknown]
  - Dizziness [Not Recovered/Not Resolved]
  - Rash [Unknown]
  - Malaise [Unknown]
  - Blood cholesterol increased [Unknown]
  - Swelling face [Recovering/Resolving]
  - Hypersensitivity [Unknown]
  - Eyelid oedema [Unknown]

NARRATIVE: CASE EVENT DATE: 201509
